FAERS Safety Report 5592283-X (Version None)
Quarter: 2007Q4

REPORT INFORMATION
  Report Type: 
  Country: None (occurrence: None)
  Receive Date: 20071217
  Receipt Date: 20071019
  Transmission Date: 20080405
  Serious: Yes (Other)
  Sender: FDA-Public Use
  Company Number: BDI-009852

PATIENT
  Age: 63 Year
  Sex: Female

DRUGS (2)
  1. MULTIHANCE [Suspect]
     Indication: NEOPLASM
     Dosage: 17 ML ONCE IV
     Route: 042
     Dates: start: 20070717, end: 20070717
  2. MULTIHANCE [Suspect]
     Indication: NUCLEAR MAGNETIC RESONANCE IMAGING BRAIN
     Dosage: 17 ML ONCE IV
     Route: 042
     Dates: start: 20070717, end: 20070717

REACTIONS (1)
  - ANAPHYLACTOID REACTION [None]
